FAERS Safety Report 4673994-7 (Version None)
Quarter: 2005Q2

REPORT INFORMATION
  Report Type: 
  Country: None (occurrence: None)
  Receive Date: 20050525
  Receipt Date: 20050512
  Transmission Date: 20051028
  Serious: Yes (Death)
  Sender: FDA-Public Use
  Company Number: 2005074554

PATIENT
  Age: 67 Year
  Sex: Male
  Weight: 55 kg

DRUGS (3)
  1. TRANEXAMIC ACID     (TRANEXAMIC ACID) [Suspect]
     Indication: HAEMORRHAGE
     Dosage: 1100 MG (1 IN 1 D) INTRAVENOUS
     Route: 042
     Dates: start: 20050127, end: 20050127
  2. DICLOXACILLIN SODIUM MONOHYDRATE [Concomitant]
  3. HEXAMYCIN           (GENTAMICIN SULFATE) [Concomitant]

REACTIONS (2)
  - POST PROCEDURAL COMPLICATION [None]
  - PULMONARY EMBOLISM [None]
